FAERS Safety Report 6302193-8 (Version None)
Quarter: 2009Q3

REPORT INFORMATION
  Report Type: 
  Country: None (occurrence: None)
  Receive Date: 20090810
  Receipt Date: 20090730
  Transmission Date: 20100115
  Serious: No
  Sender: FDA-Public Use
  Company Number: US-BIOGENIDEC-2009BI022561

PATIENT
  Age: 37 Year
  Sex: Female

DRUGS (1)
  1. TYSABRI [Suspect]
     Indication: MULTIPLE SCLEROSIS
     Route: 042
     Dates: start: 02061009

REACTIONS (1)
  - PAPILLOMA VIRAL INFECTION [None]
